FAERS Safety Report 15434300 (Version 1)
Quarter: 2018Q3

REPORT INFORMATION
  Report Type: Spontaneous
  Country: US (occurrence: US)
  Receive Date: 20180921
  Receipt Date: 20180921
  Transmission Date: 20181010
  Serious: No
  Sender: FDA-Public Use
  Company Number: None

PATIENT
  Age: 45 Year
  Weight: 79.83 kg

DRUGS (1)
  1. TALTZ [Suspect]
     Active Substance: IXEKIZUMAB
     Indication: PSORIASIS
     Dosage: INJECT 160MG (2 PENS) SUBCUTANEOUSLY AT WEEK  0 THEN  EVERY 80MG (1 PEN)  AT  WEEK 2   AS DIRECTED
     Route: 058
     Dates: start: 201808

REACTIONS (2)
  - Diarrhoea [None]
  - Cough [None]
